FAERS Safety Report 6957962-8 (Version None)
Quarter: 2010Q3

REPORT INFORMATION
  Report Type: 
  Country: None (occurrence: None)
  Receive Date: 20100830
  Receipt Date: 20100830
  Transmission Date: 20110219
  Serious: Yes (Disabling)
  Sender: FDA-Public Use
  Company Number: None

PATIENT
  Age: 30 Year
  Sex: Female
  Weight: 71.6683 kg

DRUGS (1)
  1. MIRENA [Suspect]
     Indication: INTRA-UTERINE CONTRACEPTIVE DEVICE
     Dosage: 1 1 INTRA-UTERINE
     Route: 015
     Dates: start: 20070106, end: 20100826

REACTIONS (1)
  - UTERINE INFECTION [None]
